FAERS Safety Report 5449561-4 (Version None)
Quarter: 2007Q3

REPORT INFORMATION
  Report Type: 
  Country: None (occurrence: None)
  Receive Date: 20070907
  Receipt Date: 20070823
  Transmission Date: 20080115
  Serious: Yes (Hospitalization, Other)
  Sender: FDA-Public Use
  Company Number: 2007AD000082

PATIENT
  Age: 51 Year
  Sex: Male

DRUGS (3)
  1. KEFLEX [Suspect]
     Indication: ANTIBIOTIC PROPHYLAXIS
     Dosage: 500 MG, QID, PO, 500 MG, QID, PO
     Route: 048
  2. NOVOLOG MIX 70/30 [Concomitant]
  3. NOVOLIN N [Concomitant]

REACTIONS (6)
  - FALL [None]
  - IMPAIRED HEALING [None]
  - LIGAMENT RUPTURE [None]
  - SKIN GRAFT [None]
  - TENDON RUPTURE [None]
  - WOUND DEHISCENCE [None]
